FAERS Safety Report 5038351-2 (Version None)
Quarter: 2006Q2

REPORT INFORMATION
  Report Type: 
  Country: None (occurrence: None)
  Receive Date: 20060601
  Receipt Date: 20060126
  Transmission Date: 20061013
  Serious: No
  Sender: FDA-Public Use
  Company Number: 2006PV007660

PATIENT
  Age: 57 Year
  Sex: Male
  Weight: 102.0593 kg

DRUGS (5)
  1. BYETTA [Suspect]
     Indication: DIABETES MELLITUS NON-INSULIN-DEPENDENT
     Dosage: 5 MCG; BID; SC
     Route: 058
     Dates: start: 20060105
  2. ACTOS [Concomitant]
  3. PRANDIN [Concomitant]
  4. METFORMIN [Concomitant]
  5. LYRICA [Concomitant]

REACTIONS (1)
  - PRURITUS GENERALISED [None]
